FAERS Safety Report 15565467 (Version 2)
Quarter: 2018Q4

REPORT INFORMATION
  Report Type: Report from Study
  Country: US (occurrence: US)
  Receive Date: 20181030
  Receipt Date: 20181128
  Transmission Date: 20190205
  Serious: Yes (Hospitalization)
  Sender: FDA-Public Use
  Company Number: US-ROCHE-2201487

PATIENT
  Age: 67 Year
  Sex: Male
  Weight: 103.2 kg

DRUGS (4)
  1. ATEZOLIZUMAB. [Suspect]
     Active Substance: ATEZOLIZUMAB
     Indication: PRODUCT USED FOR UNKNOWN INDICATION
     Dosage: MOST RECENT DOSE OF ATEZOLIZUMAB (1200 MG) PRIOR TO ONSET OF EVENT: 08/AUG/2018
     Route: 042
     Dates: start: 20180627
  2. GEMCITABINE [Suspect]
     Active Substance: GEMCITABINE\GEMCITABINE HYDROCHLORIDE
     Indication: PRODUCT USED FOR UNKNOWN INDICATION
     Dosage: MOST RECENT DOSE OF GEMCITABINE (1612 MG/M2) PRIOR TO ONSET OF EVENT: 16/AUG/2018
     Route: 042
     Dates: start: 20180628
  3. CISPLATIN. [Suspect]
     Active Substance: CISPLATIN
     Indication: PRODUCT USED FOR UNKNOWN INDICATION
     Dosage: MOST RECENT DOSE OF CISPLATIN (537MG/M2) PRIOR TO ONSET OF EVENT: 16/AUG/2018
     Route: 042
     Dates: start: 20180628
  4. PEGPH20 [Suspect]
     Active Substance: PEGVORHYALURONIDASE ALFA
     Indication: PRODUCT USED FOR UNKNOWN INDICATION
     Dosage: ON DAYS 1, 8, AND 15?MOST RECENT DOSE OF PEGVORHYALURONIDASE ALFA PRIOR TO ONSET OF EVENT: 15/AUG/20
     Route: 042
     Dates: start: 20180627, end: 20180822

REACTIONS (4)
  - Anaemia [Recovered/Resolved]
  - Fatigue [Recovered/Resolved]
  - Neutropenia [Recovered/Resolved]
  - Failure to thrive [Recovered/Resolved]

NARRATIVE: CASE EVENT DATE: 20180822
